FAERS Safety Report 11301412 (Version 1)
Quarter: 2015Q3

REPORT INFORMATION
  Report Type: Spontaneous
  Country: US (occurrence: US)
  Receive Date: 20150722
  Receipt Date: 20150722
  Transmission Date: 20151125
  Serious: No
  Sender: FDA-Public Use
  Company Number: US-ELI_LILLY_AND_COMPANY-US201004007693

PATIENT
  Age: 8 Year
  Sex: Male
  Weight: 18.59 kg

DRUGS (4)
  1. AMFETAMINE [Concomitant]
     Active Substance: AMPHETAMINE
     Dosage: 20 MG, EACH MORNING
  2. CLONIDINE. [Concomitant]
     Active Substance: CLONIDINE
     Dosage: UNK, EACH EVENING
  3. HUMATROPE [Suspect]
     Active Substance: SOMATROPIN
     Indication: GROWTH HORMONE DEFICIENCY
     Dosage: 0.8 MG, DAILY (1/D)
     Dates: start: 200912
  4. AMFETAMINE [Concomitant]
     Active Substance: AMPHETAMINE
     Dosage: 5 MG, EACH EVENING

REACTIONS (2)
  - Growth retardation [Not Recovered/Not Resolved]
  - Failure to thrive [Not Recovered/Not Resolved]

NARRATIVE: CASE EVENT DATE: 201002
